FAERS Safety Report 6839177-7 (Version None)
Quarter: 2010Q2

REPORT INFORMATION
  Report Type: 
  Country: None (occurrence: None)
  Receive Date: 20100625
  Receipt Date: 20100625
  Transmission Date: 20101027
  Serious: Yes (Death)
  Sender: FDA-Public Use
  Company Number: VISP-PR-1001S-0007

PATIENT
  Age: 83 Year
  Sex: Male
  Weight: 68.9467 kg

DRUGS (5)
  1. VISIPAQUE [Suspect]
     Indication: PERCUTANEOUS CORONARY INTERVENTION
     Dosage: 200 ML, SINGLE DOSE, I.A.
     Route: 013
     Dates: start: 20091231, end: 20091231
  2. ANGIOMAX [Concomitant]
  3. LIDOCAINE [Concomitant]
  4. VERSED [Concomitant]
  5. FENTANYL CITRATE [Concomitant]

REACTIONS (6)
  - ANAPHYLACTOID SHOCK [None]
  - CARDIO-RESPIRATORY ARREST [None]
  - DYSPNOEA [None]
  - HEART RATE INCREASED [None]
  - PRURITUS [None]
  - THROAT TIGHTNESS [None]
